FAERS Safety Report 4980391-3 (Version None)
Quarter: 2006Q2

REPORT INFORMATION
  Report Type: 
  Country: None (occurrence: None)
  Receive Date: 20060421
  Receipt Date: 20060421
  Transmission Date: 20061013
  Serious: Yes (Other)
  Sender: FDA-Public Use
  Company Number: None

PATIENT
  Age: 57 Year
  Sex: Male
  Weight: 90.7194 kg

DRUGS (5)
  1. VIAGRA [Suspect]
     Indication: ERECTILE DYSFUNCTION
     Dosage: 100 MG ONCE DAILY PRN PO
     Route: 048
     Dates: start: 20040101, end: 20060310
  2. ASPIRIN [Concomitant]
  3. OMEGA-3 [Concomitant]
  4. ENALAPRIL MALEATE [Concomitant]
  5. ATORVASTATIN CALCIUM [Concomitant]

REACTIONS (2)
  - HAEMORRHAGIC STROKE [None]
  - HEMIANOPIA HOMONYMOUS [None]
